FAERS Safety Report 18105836 (Version 1)
Quarter: 2020Q3

REPORT INFORMATION
  Report Type: Spontaneous
  Country: US (occurrence: US)
  Receive Date: 20200804
  Receipt Date: 20200804
  Transmission Date: 20201103
  Serious: No
  Sender: FDA-Public Use
  Company Number: US-B.I. PHARMACEUTICALS,INC./RIDGEFIELD-2020-US-038459

PATIENT
  Sex: Female

DRUGS (1)
  1. COMBIVENT [Suspect]
     Active Substance: ALBUTEROL SULFATE\IPRATROPIUM BROMIDE
     Indication: PRODUCT USED FOR UNKNOWN INDICATION
     Dosage: 1 OR 2 PUFFS DAILY, FORM OF ADMIN? INHALATION SPRAY
     Route: 065
     Dates: start: 1998

REACTIONS (3)
  - Bronchial hyperreactivity [Unknown]
  - Drug ineffective [Unknown]
  - Bronchospasm [Not Recovered/Not Resolved]
